FAERS Safety Report 8036722-3 (Version None)
Quarter: 2012Q1

REPORT INFORMATION
  Report Type: 
  Country: None (occurrence: None)
  Receive Date: 20120111
  Receipt Date: 20120103
  Transmission Date: 20120608
  Serious: Yes (Other)
  Sender: FDA-Public Use
  Company Number: ES-JNJFOC-20110802642

PATIENT
  Sex: Female

DRUGS (4)
  1. ACFOL [Concomitant]
  2. INFLIXIMAB, RECOMBINANT [Suspect]
     Indication: JUVENILE ARTHRITIS
     Route: 042
     Dates: start: 20010521
  3. METHOTREXATE [Concomitant]
     Indication: JUVENILE ARTHRITIS
  4. COXIBS [Concomitant]

REACTIONS (1)
  - HERPES ZOSTER [None]
